FAERS Safety Report 23700610 (Version 2)
Quarter: 2024Q2

REPORT INFORMATION
  Report Type: Spontaneous
  Country: US (occurrence: US)
  Receive Date: 20240403
  Receipt Date: 20240528
  Transmission Date: 20240715
  Serious: No
  Sender: FDA-Public Use
  Company Number: US-JNJFOC-20240402456

PATIENT

DRUGS (6)
  1. XARELTO [Suspect]
     Active Substance: RIVAROXABAN
     Indication: Pulmonary embolism
     Route: 048
     Dates: start: 20230109
  2. ALBUTEROL [Concomitant]
     Active Substance: ALBUTEROL
     Dates: start: 201403
  3. GABAPENTIN [Concomitant]
     Active Substance: GABAPENTIN
     Dates: start: 202303
  4. NIFEDIPINE [Concomitant]
     Active Substance: NIFEDIPINE
     Dates: start: 202303
  5. PREDNISONE [Concomitant]
     Active Substance: PREDNISONE
     Dates: start: 201403
  6. TEMAZEPAM [Concomitant]
     Active Substance: TEMAZEPAM
     Dates: start: 201904

REACTIONS (1)
  - Product dose omission issue [Unknown]
